FAERS Safety Report 17488751 (Version 2)
Quarter: 2020Q1

REPORT INFORMATION
  Report Type: Spontaneous
  Country: US (occurrence: US)
  Receive Date: 20200303
  Receipt Date: 20200311
  Transmission Date: 20200409
  Serious: Yes (Other)
  Sender: FDA-Public Use
  Company Number: US-JNJFOC-20200236258

PATIENT
  Age: 29 Year
  Sex: Female
  Weight: 66.51 kg

DRUGS (2)
  1. TOPIRAMATE. [Suspect]
     Active Substance: TOPIRAMATE
     Indication: WEIGHT DECREASED
     Route: 048
     Dates: start: 20200211, end: 20200221
  2. TOPAMAX [Suspect]
     Active Substance: TOPIRAMATE
     Indication: WEIGHT DECREASED
     Route: 048

REACTIONS (4)
  - Eye disorder [Not Recovered/Not Resolved]
  - Product use in unapproved indication [Unknown]
  - Miosis [Not Recovered/Not Resolved]
  - Off label use [Unknown]

NARRATIVE: CASE EVENT DATE: 20200211
